FAERS Safety Report 6999016-0 (Version None)
Quarter: 2010Q3

REPORT INFORMATION
  Report Type: 
  Country: None (occurrence: None)
  Receive Date: 20100902
  Receipt Date: 20100312
  Transmission Date: 20110219
  Serious: Yes (Life-Threatening, Hospitalization, Other)
  Sender: FDA-Public Use
  Company Number: 199776USA

PATIENT
  Age: 41 Year
  Sex: Female
  Weight: 114.76 kg

DRUGS (6)
  1. LISINOPRIL AND HYDROCHLOROTHIAZIDE [Suspect]
     Indication: HYPERTENSION
     Dosage: 12.5/10MG (1 IN 1 D),ORAL
     Route: 048
     Dates: start: 20070720, end: 20090127
  2. LISINOPRIL AND HYDROCHLOROTHIAZIDE [Suspect]
     Dosage: 12.5 MG/20 MG (1 IN 1 D),ORAL
     Route: 048
     Dates: start: 20090128, end: 20090203
  3. METFORMIN [Concomitant]
  4. CILEST [Concomitant]
  5. AMLODIPINE [Concomitant]
  6. RANITIDINE [Concomitant]

REACTIONS (17)
  - ANGIOEDEMA [None]
  - DECREASED APPETITE [None]
  - DRY THROAT [None]
  - DYSPHAGIA [None]
  - DYSPHONIA [None]
  - FATIGUE [None]
  - FEELING HOT [None]
  - INCREASED UPPER AIRWAY SECRETION [None]
  - INSOMNIA [None]
  - MENORRHAGIA [None]
  - MULTIPLE ALLERGIES [None]
  - ODYNOPHAGIA [None]
  - PHARYNGEAL ERYTHEMA [None]
  - POLYCYSTIC OVARIES [None]
  - RESTLESSNESS [None]
  - SINUS DISORDER [None]
  - THROAT IRRITATION [None]
